FAERS Safety Report 14854005 (Version 1)
Quarter: 2018Q2

REPORT INFORMATION
  Report Type: Spontaneous
  Country: SE (occurrence: SE)
  Receive Date: 20180507
  Receipt Date: 20180507
  Transmission Date: 20180711
  Serious: Yes (Hospitalization)
  Sender: FDA-Public Use
  Company Number: SE-ROCHE-2118682

PATIENT
  Age: 46 Year
  Sex: Female

DRUGS (2)
  1. GAZYVARO [Suspect]
     Active Substance: OBINUTUZUMAB
     Indication: LYMPHOMA
     Route: 065
     Dates: start: 20180314
  2. ZYDELIG [Concomitant]
     Active Substance: IDELALISIB
     Route: 065

REACTIONS (2)
  - Chills [Unknown]
  - Back pain [Unknown]

NARRATIVE: CASE EVENT DATE: 20180314
